FAERS Safety Report 20775813 (Version 2)
Quarter: 2022Q2

REPORT INFORMATION
  Report Type: Report from Study
  Country: CO (occurrence: CO)
  Receive Date: 20220502
  Receipt Date: 20220510
  Transmission Date: 20220721
  Serious: Yes (Other)
  Sender: FDA-Public Use
  Company Number: CO-TAKEDA-2022TUS028020

PATIENT
  Age: 26 Year
  Sex: Male
  Weight: 61 kg

DRUGS (3)
  1. ANTIHEMOPHILIC FACTOR HUMAN [Suspect]
     Active Substance: ANTIHEMOPHILIC FACTOR HUMAN
     Indication: Product used for unknown indication
     Dosage: 1500 INTERNATIONAL UNIT
     Route: 042
     Dates: start: 20210802
  2. ANTIHEMOPHILIC FACTOR HUMAN [Suspect]
     Active Substance: ANTIHEMOPHILIC FACTOR HUMAN
     Dosage: 1500 INTERNATIONAL UNIT
     Route: 065
  3. ANTIHEMOPHILIC FACTOR HUMAN [Suspect]
     Active Substance: ANTIHEMOPHILIC FACTOR HUMAN
     Dosage: 2500 INTERNATIONAL UNIT
     Route: 065

REACTIONS (9)
  - Haemarthrosis [Recovered/Resolved]
  - Drug ineffective [Unknown]
  - Road traffic accident [Unknown]
  - Joint injury [Unknown]
  - Pain [Unknown]
  - Arthropathy [Unknown]
  - Oedema [Unknown]
  - Feeling hot [Unknown]
  - Incorrect dose administered [Unknown]

NARRATIVE: CASE EVENT DATE: 20220421
